FAERS Safety Report 12561411 (Version 1)
Quarter: 2016Q3

REPORT INFORMATION
  Report Type: Spontaneous
  Country: US (occurrence: US)
  Receive Date: 20160715
  Receipt Date: 20160715
  Transmission Date: 20161109
  Serious: No
  Sender: FDA-Public Use
  Company Number: US-ENDO PHARMACEUTICALS INC-2015SCPR014538

PATIENT

DRUGS (9)
  1. CLONAZEPAM. [Suspect]
     Active Substance: CLONAZEPAM
     Indication: TARDIVE DYSKINESIA
     Dosage: 1 DF, SIX TIMES A DAY
     Route: 048
  2. CORTISPORIN [Suspect]
     Active Substance: BACITRACIN ZINC\HYDROCORTISONE\NEOMYCIN SULFATE\POLYMYXIN B SULFATE
     Indication: EAR INFECTION
     Dosage: 3 GTT, OD, ON BOTH EARS
     Route: 001
     Dates: start: 20151206, end: 20151206
  3. CARVEDILOL. [Concomitant]
     Active Substance: CARVEDILOL
     Indication: CARDIAC FAILURE CONGESTIVE
     Dosage: 1 DF, BID
     Route: 048
  4. DIGOXIN. [Concomitant]
     Active Substance: DIGOXIN
     Indication: CARDIAC FAILURE CONGESTIVE
     Dosage: 1 DF, BID
     Route: 048
  5. SIMVASTATIN. [Concomitant]
     Active Substance: SIMVASTATIN
     Indication: BLOOD CHOLESTEROL ABNORMAL
     Dosage: 1 DF, OD
     Route: 048
  6. DICLOPHEN                          /00171701/ [Concomitant]
     Indication: TARDIVE DYSKINESIA
     Dosage: 1 DF, TID
     Route: 048
  7. FLUPHENAZINE [Concomitant]
     Active Substance: FLUPHENAZINE
     Indication: TARDIVE DYSKINESIA
     Dosage: 1 DF, SIX TIMES A DAY
     Route: 048
  8. ALTACE [Concomitant]
     Active Substance: RAMIPRIL
     Indication: CARDIAC FAILURE CONGESTIVE
     Dosage: UNK, BID
     Route: 048
  9. PREVACID [Concomitant]
     Active Substance: LANSOPRAZOLE
     Indication: GASTROOESOPHAGEAL REFLUX DISEASE
     Dosage: UNK, BID
     Route: 048

REACTIONS (3)
  - Ear pain [Recovering/Resolving]
  - Ear discomfort [Not Recovered/Not Resolved]
  - Product use issue [Unknown]

NARRATIVE: CASE EVENT DATE: 20151206
